FAERS Safety Report 18394058 (Version 1)
Quarter: 2020Q4

REPORT INFORMATION
  Report Type: Spontaneous
  Country: US (occurrence: US)
  Receive Date: 20201016
  Receipt Date: 20201016
  Transmission Date: 20210114
  Serious: Yes (Life-Threatening, Other)
  Sender: FDA-Public Use
  Company Number: US-FRESENIUS KABI-FK202010262

PATIENT
  Age: 65 Year
  Sex: Female
  Weight: 118.5 kg

DRUGS (8)
  1. HEPARIN SODIUM INJECTION, USP [Suspect]
     Active Substance: HEPARIN SODIUM
     Dosage: 22790 UNITS TOTAL ON 20SEP2020
     Dates: start: 20200920, end: 20200920
  2. HEPARIN SODIUM INJECTION, USP [Suspect]
     Active Substance: HEPARIN SODIUM
     Dosage: 22790 UNITS TOTAL ON 20SEP2020
     Dates: start: 20200920, end: 20200920
  3. HEPARIN SODIUM INJECTION, USP [Suspect]
     Active Substance: HEPARIN SODIUM
     Dosage: 12000 UNITS TOTAL ON 21SEP2020
     Dates: start: 20200921, end: 20200921
  4. HEPARIN SODIUM INJECTION, USP [Suspect]
     Active Substance: HEPARIN SODIUM
     Dosage: 12000 UNITS TOTAL ON 21SEP2020
     Dates: start: 20200921, end: 20200921
  5. HEPARIN SODIUM INJECTION, USP [Suspect]
     Active Substance: HEPARIN SODIUM
     Dosage: 37000 UNITS TOTAL ON 14SEP2020
     Dates: start: 20200914, end: 20200914
  6. HEPARIN SODIUM INJECTION, USP [Suspect]
     Active Substance: HEPARIN SODIUM
     Route: 058
     Dates: start: 20200915, end: 20200916
  7. HEPARIN [Suspect]
     Active Substance: HEPARIN SODIUM
     Indication: PRODUCT USED FOR UNKNOWN INDICATION
     Dosage: UNKNOWN
     Dates: start: 20200920, end: 20200922
  8. HEPARIN SODIUM INJECTION, USP [Suspect]
     Active Substance: HEPARIN SODIUM
     Indication: PRODUCT USED FOR UNKNOWN INDICATION
     Dosage: 37000 UNITS TOTAL ON 14SEP2020
     Dates: start: 20200914, end: 20200914

REACTIONS (4)
  - Thrombosis [Unknown]
  - Acute myocardial infarction [Unknown]
  - Coronary artery occlusion [Unknown]
  - Coronary artery thrombosis [Unknown]

NARRATIVE: CASE EVENT DATE: 20200920
